FAERS Safety Report 9248350 (Version 3)
Quarter: 2013Q3

REPORT INFORMATION
  Report Type: Spontaneous
  Country: FR (occurrence: FR)
  Receive Date: 20130423
  Receipt Date: 20130805
  Transmission Date: 20140515
  Serious: Yes (Hospitalization)
  Sender: FDA-Public Use
  Company Number: FR-SANOFI-AVENTIS-2013SA040262

PATIENT
  Age: 70 Year
  Sex: Male

DRUGS (2)
  1. RIFADINE [Suspect]
     Indication: SKIN ULCER
     Route: 065
     Dates: start: 20130402, end: 20130403
  2. VANCOMYCIN MYLAN [Suspect]
     Indication: SKIN ULCER
     Dosage: STRENGTH:2.5G
     Route: 042
     Dates: start: 20130402, end: 20130403

REACTIONS (2)
  - Cholestasis [Recovered/Resolved]
  - Hepatocellular injury [Recovered/Resolved]
